FAERS Safety Report 14686840 (Version 1)
Quarter: 2018Q1

REPORT INFORMATION
  Report Type: Report from Study
  Country: None (occurrence: GB)
  Receive Date: 20180327
  Receipt Date: 20180327
  Transmission Date: 20180509
  Serious: Yes (Death)
  Sender: FDA-Public Use
  Company Number: GB-ABBVIE-18K-167-2265210-00

PATIENT
  Age: 78 Year
  Sex: Male

DRUGS (1)
  1. DUODOPA [Suspect]
     Active Substance: CARBIDOPA\LEVODOPA
     Indication: PARKINSON^S DISEASE
     Dosage: 100 ML CASSETTE
     Route: 050

REACTIONS (4)
  - Death [Fatal]
  - Device occlusion [Not Recovered/Not Resolved]
  - Device alarm issue [Not Recovered/Not Resolved]
  - Freezing phenomenon [Unknown]

NARRATIVE: CASE EVENT DATE: 201802
